FAERS Safety Report 8814085 (Version 1)
Quarter: 2012Q4

REPORT INFORMATION
  Report Type: 
  Country: US (occurrence: US)
  Receive Date: 20120928
  Receipt Date: 20120928
  Transmission Date: 20130627
  Serious: No
  Sender: FDA-Public Use
  Company Number: US-PFIZER INC-2012237511

PATIENT
  Age: 53 Year
  Sex: Male

DRUGS (4)
  1. AMLODIPINE BESILATE [Suspect]
     Dosage: UNK
  2. VENLAFAXINE HYDROCHLORIDE [Suspect]
     Dosage: UNK
  3. LOSARTAN [Suspect]
     Dosage: UNK
  4. LEXAPRO [Suspect]
     Dosage: UNK

REACTIONS (4)
  - Drug ineffective [Unknown]
  - Myalgia [Unknown]
  - Pain in extremity [Unknown]
  - Abdominal pain upper [Unknown]
